FAERS Safety Report 24528096 (Version 1)
Quarter: 2024Q4

REPORT INFORMATION
  Report Type: Spontaneous
  Country: CN (occurrence: CN)
  Receive Date: 20241021
  Receipt Date: 20241021
  Transmission Date: 20250115
  Serious: Yes (Other)
  Sender: NOVARTIS
  Company Number: CN-002147023-NVSC2024CN203893

PATIENT
  Weight: 13 kg

DRUGS (3)
  1. DESFERAL [Suspect]
     Active Substance: DEFEROXAMINE MESYLATE
     Indication: Product used for unknown indication
     Dosage: UNK
     Route: 042
  2. DESFERAL [Suspect]
     Active Substance: DEFEROXAMINE MESYLATE
     Dosage: UNK (BUTTOCK INJECTION)
     Route: 065
  3. DESFERAL [Suspect]
     Active Substance: DEFEROXAMINE MESYLATE
     Dosage: UNK
     Route: 041
     Dates: start: 202410

REACTIONS (1)
  - Mucormycosis [Unknown]

NARRATIVE: CASE EVENT DATE: 20240101
